FAERS Safety Report 15682602 (Version 1)
Quarter: 2018Q4

REPORT INFORMATION
  Report Type: Spontaneous
  Country: CH (occurrence: CH)
  Receive Date: 20181203
  Receipt Date: 20181203
  Transmission Date: 20190205
  Serious: Yes (Death, Other)
  Sender: FDA-Public Use
  Company Number: CH-009507513-2010SP003149

PATIENT
  Age: 49 Year
  Sex: Female

DRUGS (6)
  1. SEROQUEL [Suspect]
     Active Substance: QUETIAPINE FUMARATE
     Indication: PRODUCT USED FOR UNKNOWN INDICATION
     Dosage: 50 MG, ONCE
     Route: 048
     Dates: start: 20091212, end: 20091212
  2. SEROQUEL [Suspect]
     Active Substance: QUETIAPINE FUMARATE
     Dosage: 225 MG, ONCE
     Route: 048
     Dates: start: 20091216, end: 20091216
  3. REMERON [Suspect]
     Active Substance: MIRTAZAPINE
     Indication: DEPRESSION
     Dosage: 15 MG, QD
     Route: 048
     Dates: start: 20091212, end: 20091216
  4. SEROQUEL [Suspect]
     Active Substance: QUETIAPINE FUMARATE
     Dosage: 200 MG, ONCE
     Route: 048
     Dates: start: 20091216, end: 20091216
  5. SEROQUEL [Suspect]
     Active Substance: QUETIAPINE FUMARATE
     Dosage: 25 MG, ONCE
     Route: 048
     Dates: start: 20091214, end: 20091215
  6. TEMESTA [Concomitant]
     Indication: PRODUCT USED FOR UNKNOWN INDICATION
     Dosage: MAXIMALLY 0.5MG
     Route: 048
     Dates: start: 20081212, end: 20081213

REACTIONS (2)
  - Hallucination, auditory [Unknown]
  - Completed suicide [Fatal]

NARRATIVE: CASE EVENT DATE: 20091217
